FAERS Safety Report 7595416-9 (Version None)
Quarter: 2011Q3

REPORT INFORMATION
  Report Type: 
  Country: None (occurrence: None)
  Receive Date: 20110707
  Receipt Date: 20110627
  Transmission Date: 20111222
  Serious: Yes (Death, Hospitalization)
  Sender: FDA-Public Use
  Company Number: JP-ROCHE-773481

PATIENT
  Sex: Female

DRUGS (12)
  1. CLOSTRIDIUM BUTYRICUM [Concomitant]
     Route: 048
     Dates: start: 20110419, end: 20110427
  2. BROTIZOLAM [Concomitant]
     Route: 048
     Dates: end: 20110427
  3. VANCOMYCIN [Concomitant]
     Route: 041
     Dates: start: 20110414, end: 20110421
  4. CLINORIL [Concomitant]
     Route: 048
     Dates: start: 20110404, end: 20110427
  5. SERTRALINE HYDROCHLORIDE [Concomitant]
     Route: 048
     Dates: end: 20110427
  6. MAGMITT [Concomitant]
     Route: 048
     Dates: end: 20110427
  7. ZOSYN [Concomitant]
     Route: 041
     Dates: start: 20110422, end: 20110424
  8. TPN ELECTROLYTES IN PLASTIC CONTAINER [Concomitant]
     Route: 041
     Dates: start: 20110414, end: 20110502
  9. FUROSEMIDE [Concomitant]
     Route: 048
     Dates: start: 20110401, end: 20110427
  10. GANCICLOVIR SODIUM [Suspect]
     Indication: CYTOMEGALOVIRUS INFECTION
     Route: 041
     Dates: start: 20110418, end: 20110421
  11. GANCICLOVIR SODIUM [Suspect]
     Route: 041
     Dates: start: 20110426, end: 20110502
  12. ZOSYN [Concomitant]
     Route: 041
     Dates: start: 20110414, end: 20110422

REACTIONS (1)
  - BLOOD CREATININE INCREASED [None]
